FAERS Safety Report 9129691 (Version 1)
Quarter: 2013Q1

REPORT INFORMATION
  Report Type: Report from Study
  Country: FR (occurrence: FR)
  Receive Date: 20130228
  Receipt Date: 20130228
  Transmission Date: 20140127
  Serious: Yes (Hospitalization, Other)
  Sender: FDA-Public Use
  Company Number: FR-PFIZER INC-2013066475

PATIENT
  Age: 73 Year
  Sex: Female
  Weight: 54 kg

DRUGS (2)
  1. TORISEL [Suspect]
     Dosage: 75 MG, WEEKLY
     Dates: start: 20091001, end: 20100121
  2. ZINNAT [Concomitant]
     Indication: ANTIBIOTIC THERAPY
     Route: 048

REACTIONS (5)
  - Pyrexia [Recovered/Resolved]
  - Sepsis [Recovered/Resolved]
  - Pancytopenia [Recovered/Resolved]
  - Otitis media acute [Recovered/Resolved]
  - Vertigo positional [Recovered/Resolved]
